FAERS Safety Report 9667209 (Version 3)
Quarter: 2014Q1

REPORT INFORMATION
  Report Type: Report from Study
  Country: TR (occurrence: TR)
  Receive Date: 20131104
  Receipt Date: 20140116
  Transmission Date: 20141002
  Serious: Yes (Death, Hospitalization)
  Sender: FDA-Public Use
  Company Number: TR-BAYER-2013-131919

PATIENT
  Age: 79 Year
  Sex: Female
  Weight: 36 kg

DRUGS (3)
  1. REGORAFENIB [Suspect]
     Indication: COLORECTAL CANCER METASTATIC
     Dosage: 160 MG DAILY
     Route: 048
     Dates: start: 20131003, end: 20131023
  2. OPTIRAY [Concomitant]
     Indication: IMAGING PROCEDURE
     Dosage: UNK
     Route: 042
     Dates: start: 20130917, end: 20130917
  3. OPTIRAY [Concomitant]
     Indication: IMAGING PROCEDURE
     Dosage: 160 MG DAILY
     Route: 048
     Dates: start: 20131003, end: 20131023

REACTIONS (1)
  - Sepsis [Fatal]
